FAERS Safety Report 4445149-2 (Version None)
Quarter: 2004Q3

REPORT INFORMATION
  Report Type: 
  Country: None (occurrence: None)
  Receive Date: 20040907
  Receipt Date: 20040825
  Transmission Date: 20050211
  Serious: Yes (Hospitalization)
  Sender: FDA-Public Use
  Company Number: 144-20785-04090033

PATIENT
  Age: 57 Year
  Sex: Male

DRUGS (3)
  1. THALIDOMIDE - PHARMION (THALIDOMIDE) (CAPSULES) [Suspect]
     Indication: MULTIPLE MYELOMA
     Dosage: 400 MG, Q.D., ORAL
     Route: 048
  2. AMIKACIN (AMIKACIN) (SOLUTION) [Suspect]
     Indication: INFECTION
     Dosage: 1 GM Q 24H, INTRAVENOUS
     Route: 042
  3. CEFOTAXIME (CEFOTAXIME) (SOLUTION) [Concomitant]

REACTIONS (3)
  - DRUG INTERACTION [None]
  - PNEUMONIA [None]
  - RENAL FAILURE [None]
